FAERS Safety Report 6660758-8 (Version None)
Quarter: 2010Q1

REPORT INFORMATION
  Report Type: 
  Country: None (occurrence: None)
  Receive Date: 20100326
  Receipt Date: 20100319
  Transmission Date: 20100710
  Serious: Yes (Other)
  Sender: FDA-Public Use
  Company Number: CIP10000625

PATIENT
  Sex: Female
  Weight: 61 kg

DRUGS (1)
  1. ACTONEL [Suspect]
     Indication: OSTEOPOROSIS
     Dosage: 35 MG ONCE WEEKLY, ORAL
     Route: 048
     Dates: start: 20081001, end: 20090801

REACTIONS (4)
  - BLOOD CALCIUM ABNORMAL [None]
  - DRUG INEFFECTIVE [None]
  - PARATHYROID DISORDER [None]
  - PARATHYROID GLAND ENLARGEMENT [None]
